FAERS Safety Report 5442955-2 (Version None)
Quarter: 2007Q3

REPORT INFORMATION
  Report Type: 
  Country: None (occurrence: None)
  Receive Date: 20070905
  Receipt Date: 20070831
  Transmission Date: 20080115
  Serious: Yes (Other)
  Sender: FDA-Public Use
  Company Number: JP-BAYER-200710541BYL

PATIENT
  Age: 68 Year
  Sex: Male

DRUGS (4)
  1. ADALAT [Suspect]
     Indication: HYPERTENSION
     Dosage: TOTAL DAILY DOSE: 20 MG  UNIT DOSE: 20 MG
     Route: 048
     Dates: start: 20070517, end: 20070803
  2. SENNOSIDE [Concomitant]
     Route: 048
     Dates: end: 20070423
  3. KAMAG [Concomitant]
     Route: 048
     Dates: end: 20070423
  4. GASMOTIN [Concomitant]
     Route: 048
     Dates: end: 20070423

REACTIONS (2)
  - JAUNDICE [None]
  - LIVER DISORDER [None]
